FAERS Safety Report 7071630-6 (Version None)
Quarter: 2010Q4

REPORT INFORMATION
  Report Type: 
  Country: None (occurrence: None)
  Receive Date: 20101029
  Receipt Date: 20090930
  Transmission Date: 20110411
  Serious: No
  Sender: FDA-Public Use
  Company Number: A0809760A

PATIENT
  Sex: Female

DRUGS (2)
  1. ADVAIR [Suspect]
     Indication: COUGH
     Dosage: 1PUFF SINGLE DOSE
     Route: 055
     Dates: start: 20090929
  2. CODEINE SULFATE [Suspect]
     Dates: start: 20090929

REACTIONS (3)
  - HEADACHE [None]
  - MALAISE [None]
  - NERVOUSNESS [None]
